FAERS Safety Report 16204608 (Version 2)
Quarter: 2019Q2

REPORT INFORMATION
  Report Type: Spontaneous
  Country: HR (occurrence: HR)
  Receive Date: 20190416
  Receipt Date: 20190426
  Transmission Date: 20190711
  Serious: Yes (Other)
  Sender: FDA-Public Use
  Company Number: HR-009507513-1904HRV006651

PATIENT
  Sex: Male

DRUGS (9)
  1. KEYTRUDA [Suspect]
     Active Substance: PEMBROLIZUMAB
     Dosage: 3RD ADMINISTRATION
     Dates: start: 201901
  2. OMEGA-3 ACID ETHYL ESTERS [Concomitant]
     Active Substance: OMEGA-3-ACID ETHYL ESTERS
     Dosage: 1 PER DAY (1X1)
     Route: 048
  3. KEYTRUDA [Suspect]
     Active Substance: PEMBROLIZUMAB
     Dosage: 4TH ADMINISTRATION
     Dates: start: 2019
  4. MARTEFARIN [Concomitant]
     Active Substance: WARFARIN
     Dosage: 3/4 TABLET PER DAY (1X 3/4 TBL)
     Route: 048
  5. TRITAZIDE [Concomitant]
     Active Substance: HYDROCHLOROTHIAZIDE\RAMIPRIL
     Dosage: 1/2 PER DAY (1X1/2)
     Route: 048
  6. KEYTRUDA [Suspect]
     Active Substance: PEMBROLIZUMAB
     Indication: LUNG ADENOCARCINOMA
     Dosage: FIRST ADMINISTRATION
     Dates: start: 201811
  7. CONCOR [Concomitant]
     Active Substance: BISOPROLOL FUMARATE
     Dosage: 1/2 TWICE A DAY (2.5 MG 2X1/2)
     Route: 048
  8. LEXILIUM [Concomitant]
     Active Substance: BROMAZEPAM
     Dosage: 1 TWICE A DAY (2X1)
     Route: 048
  9. KEYTRUDA [Suspect]
     Active Substance: PEMBROLIZUMAB
     Dosage: 2ND ADMINISTRATTION
     Dates: start: 201812

REACTIONS (2)
  - Deep vein thrombosis [Unknown]
  - Malignant neoplasm progression [Not Recovered/Not Resolved]

NARRATIVE: CASE EVENT DATE: 201812
